FAERS Safety Report 19849976 (Version 1)
Quarter: 2021Q3

REPORT INFORMATION
  Report Type: Spontaneous
  Country: AU (occurrence: AU)
  Receive Date: 20210917
  Receipt Date: 20210917
  Transmission Date: 20211014
  Serious: Yes (Other)
  Sender: FDA-Public Use
  Company Number: AU-PURDUE-USA-2021-0284287

PATIENT
  Age: 76 Year
  Sex: Female

DRUGS (1)
  1. BUPREDERMAL [Suspect]
     Active Substance: BUPRENORPHINE
     Indication: PRODUCT USED FOR UNKNOWN INDICATION
     Dosage: [10 MG STRENGTH], UNK
     Route: 062

REACTIONS (7)
  - Off label use [Unknown]
  - Product physical issue [Unknown]
  - Application site burn [Unknown]
  - Upper limb fracture [Unknown]
  - Inadequate analgesia [Unknown]
  - Underdose [Unknown]
  - Product adhesion issue [Unknown]
